FAERS Safety Report 6372011-0 (Version None)
Quarter: 2009Q3

REPORT INFORMATION
  Report Type: 
  Country: None (occurrence: None)
  Receive Date: 20090917
  Receipt Date: 20090907
  Transmission Date: 20100115
  Serious: Yes (Hospitalization)
  Sender: FDA-Public Use
  Company Number: GXKR2009IT09974

PATIENT
  Age: 30 Year
  Sex: Male

DRUGS (1)
  1. LEFLUNOMIDE [Suspect]
     Indication: RHEUMATOID ARTHRITIS

REACTIONS (18)
  - ANAEMIA [None]
  - ASTHENIA [None]
  - COUGH [None]
  - CUTANEOUS VASCULITIS [None]
  - DYSPNOEA [None]
  - GLOMERULONEPHRITIS [None]
  - HAEMATURIA [None]
  - HAEMOPTYSIS [None]
  - HYPOXIA [None]
  - PALLOR [None]
  - PALPABLE PURPURA [None]
  - PLEURAL EFFUSION [None]
  - PROTEINURIA [None]
  - PULMONARY ALVEOLAR HAEMORRHAGE [None]
  - PULMONARY VASCULITIS [None]
  - PYREXIA [None]
  - RENAL FAILURE ACUTE [None]
  - VASCULITIS [None]
